FAERS Safety Report 15261556 (Version 1)
Quarter: 2018Q3

REPORT INFORMATION
  Report Type: Spontaneous
  Country: US (occurrence: US)
  Receive Date: 20180809
  Receipt Date: 20180809
  Transmission Date: 20181010
  Serious: Yes (Death, Hospitalization)
  Sender: FDA-Public Use
  Company Number: US-TEVA-2018-US-938946

PATIENT
  Age: 23 Year
  Sex: Female

DRUGS (2)
  1. MYCOPHENOLATE [Suspect]
     Active Substance: MYCOPHENOLIC ACID
     Indication: SYSTEMIC LUPUS ERYTHEMATOSUS
     Route: 065
  2. PREDNISONE. [Suspect]
     Active Substance: PREDNISONE
     Indication: SYSTEMIC LUPUS ERYTHEMATOSUS
     Route: 065

REACTIONS (11)
  - Hypothyroidism [Fatal]
  - Mucosal inflammation [Fatal]
  - Anaemia [Fatal]
  - Respiratory disorder [Fatal]
  - Pneumonitis [Fatal]
  - Atelectasis [Fatal]
  - Bronchial obstruction [Fatal]
  - Multiple organ dysfunction syndrome [Fatal]
  - Haemorrhage [Fatal]
  - Renal failure [Fatal]
  - Varicella zoster virus infection [Fatal]
